FAERS Safety Report 10343093 (Version 1)
Quarter: 2014Q3

REPORT INFORMATION
  Report Type: Spontaneous
  Country: US (occurrence: None)
  Receive Date: 20140723
  Receipt Date: 20140723
  Transmission Date: 20150326
  Serious: Yes (Hospitalization)
  Sender: FDA-Public Use
  Company Number: UTC-047719

PATIENT
  Age: 17 Year
  Sex: Male
  Weight: 49.9 kg

DRUGS (4)
  1. TRACLEER [Concomitant]
     Active Substance: BOSENTAN\BOSENTAN MONOHYDRATE
  2. REMODULIN [Suspect]
     Active Substance: TREPROSTINIL
     Indication: COR PULMONALE CHRONIC
     Route: 041
     Dates: start: 20131206
  3. FLOLAN (EPOPROSTENOL) [Concomitant]
  4. REVATIO (SIDENAFIL CITRATE) [Concomitant]

REACTIONS (2)
  - Pyrexia [None]
  - Device related infection [None]

NARRATIVE: CASE EVENT DATE: 20140415
